FAERS Safety Report 5180371-1 (Version None)
Quarter: 2006Q4

REPORT INFORMATION
  Report Type: 
  Country: None (occurrence: None)
  Receive Date: 20061219
  Receipt Date: 20060909
  Transmission Date: 20070319
  Serious: No
  Sender: FDA-Public Use
  Company Number: US-AMGEN-KDL193106

PATIENT
  Sex: Female

DRUGS (4)
  1. ENBREL [Suspect]
     Indication: RHEUMATOID ARTHRITIS
     Route: 058
     Dates: start: 20060305
  2. MINOCIN [Concomitant]
     Route: 048
  3. PLAQUENIL [Concomitant]
  4. METHOTREXATE [Concomitant]
     Route: 048
     Dates: start: 20050901

REACTIONS (6)
  - DEHYDRATION [None]
  - HERPES ZOSTER [None]
  - JOINT SWELLING [None]
  - NAUSEA [None]
  - PAIN IN EXTREMITY [None]
  - POLLAKIURIA [None]
